FAERS Safety Report 7134403-1 (Version None)
Quarter: 2010Q4

REPORT INFORMATION
  Report Type: 
  Country: None (occurrence: None)
  Receive Date: 20101203
  Receipt Date: 20101123
  Transmission Date: 20110411
  Serious: Yes (Hospitalization)
  Sender: FDA-Public Use
  Company Number: PHHY2010NL54396

PATIENT
  Sex: Female

DRUGS (12)
  1. S-OIV FOCETRIA 7.5AG 100% MF59 V-V111-A+INJ [Suspect]
     Route: 030
  2. S-OIV FOCETRIA 7.5AG 100% MF59 V-V111-A+INJ [Suspect]
     Route: 030
     Dates: start: 20091203, end: 20091203
  3. SYNTOCINON [Suspect]
     Indication: INDUCED LABOUR
     Dosage: 5E
  4. SYNTOCINON [Suspect]
     Dosage: 10 E
  5. OPIATE [Suspect]
     Indication: PAIN
  6. PULMICORT [Concomitant]
  7. CLAMOXYL [Concomitant]
     Dosage: 500 MG
     Dates: start: 20090101
  8. PARACETAMOL [Concomitant]
     Dosage: 500 MG
     Dates: start: 20090101
  9. VITAMIN B COMPLEX [Concomitant]
     Dosage: UNK
     Dates: start: 20090101
  10. TURBOHALER [Concomitant]
     Dosage: 400 MCG
  11. VENTOLIN [Concomitant]
  12. PENICILLIN [Concomitant]

REACTIONS (3)
  - CAESAREAN SECTION [None]
  - DRUG EXPOSURE DURING PREGNANCY [None]
  - OBSTRUCTED LABOUR [None]
